FAERS Safety Report 6141382-2 (Version None)
Quarter: 2009Q2

REPORT INFORMATION
  Report Type: 
  Country: None (occurrence: None)
  Receive Date: 20090401
  Receipt Date: 20090401
  Transmission Date: 20091009
  Serious: No
  Sender: FDA-Public Use
  Company Number: None

PATIENT
  Age: 50 Year
  Sex: Male
  Weight: 55.7924 kg

DRUGS (1)
  1. PREVPAC [Suspect]
     Indication: HELICOBACTER INFECTION
     Dosage: 30MG PREVACID 500 MG BIAXIN 2 TIMES A DAY PO 500 MG AMOXICILLIN 2 TIMES A DAY PO
     Route: 048
     Dates: start: 20090327, end: 20090330

REACTIONS (2)
  - ABDOMINAL PAIN UPPER [None]
  - HYPERHIDROSIS [None]
